FAERS Safety Report 24956994 (Version 1)
Quarter: 2025Q1

REPORT INFORMATION
  Report Type: Other
  Country: FR (occurrence: FR)
  Receive Date: 20250211
  Receipt Date: 20250211
  Transmission Date: 20250408
  Serious: Yes (Hospitalization)
  Sender: Atnahs Healthcare
  Company Number: None

PATIENT
  Age: 29 Year
  Sex: Male
  Weight: 93.5 kg

DRUGS (7)
  1. VALIUM [Suspect]
     Active Substance: DIAZEPAM
     Indication: Product used for unknown indication
     Route: 048
     Dates: start: 202409
  2. VALIUM [Suspect]
     Active Substance: DIAZEPAM
     Route: 048
     Dates: start: 20241210, end: 20241210
  3. TRAMADOL [Suspect]
     Active Substance: TRAMADOL
     Indication: Product used for unknown indication
     Route: 048
     Dates: start: 202409
  4. TRAMADOL [Suspect]
     Active Substance: TRAMADOL
     Route: 048
     Dates: start: 20241210, end: 20241210
  5. XANAX [Suspect]
     Active Substance: ALPRAZOLAM
     Indication: Product used for unknown indication
     Route: 048
     Dates: start: 202409
  6. COCAINE [Suspect]
     Active Substance: COCAINE
     Indication: Product used for unknown indication
     Dates: start: 20241107
  7. LORAZEPAM [Suspect]
     Active Substance: LORAZEPAM
     Indication: Product used for unknown indication
     Route: 048
     Dates: start: 20241210, end: 20241210

REACTIONS (10)
  - Chest pain [Recovered/Resolved]
  - Palpitations [Recovered/Resolved]
  - Electrocardiogram abnormal [Recovered/Resolved]
  - Substance use disorder [Not Recovered/Not Resolved]
  - Drug use disorder [Not Recovered/Not Resolved]
  - Poisoning deliberate [Recovered/Resolved]
  - Coma [Recovered/Resolved]
  - Ejection fraction decreased [Recovered/Resolved]
  - Troponin increased [Recovered/Resolved]
  - Pneumonia aspiration [Recovered/Resolved]

NARRATIVE: CASE EVENT DATE: 20240901
